FAERS Safety Report 16017501 (Version 1)
Quarter: 2019Q1

REPORT INFORMATION
  Report Type: Spontaneous
  Country: US (occurrence: US)
  Receive Date: 20190131
  Receipt Date: 20190131
  Transmission Date: 20190418
  Serious: Yes (Hospitalization)
  Sender: FDA-Public Use
  Company Number: None

PATIENT
  Age: 75 Year
  Sex: Female

DRUGS (17)
  1. SENNA-S [Concomitant]
     Active Substance: DOCUSATE SODIUM\SENNOSIDES
  2. ATIVAN [Concomitant]
     Active Substance: LORAZEPAM
  3. WARFARIN [Concomitant]
     Active Substance: WARFARIN
  4. NYSTATIN. [Concomitant]
     Active Substance: NYSTATIN
  5. DILTIAZEM. [Concomitant]
     Active Substance: DILTIAZEM
  6. POTASSIUM CHLORIDE. [Concomitant]
     Active Substance: POTASSIUM CHLORIDE
  7. DIGOXIN. [Concomitant]
     Active Substance: DIGOXIN
  8. RESTASIS [Concomitant]
     Active Substance: CYCLOSPORINE
  9. VITAMIN D2 [Concomitant]
     Active Substance: ERGOCALCIFEROL
  10. TORSEMIDE. [Concomitant]
     Active Substance: TORSEMIDE
  11. ADEMPAS [Suspect]
     Active Substance: RIOCIGUAT
     Indication: PULMONARY ARTERIAL HYPERTENSION
     Route: 048
     Dates: start: 201410, end: 201812
  12. DUONEB [Concomitant]
     Active Substance: ALBUTEROL SULFATE\IPRATROPIUM BROMIDE
  13. DUOLERA [Concomitant]
  14. PERCOCET [Concomitant]
     Active Substance: ACETAMINOPHEN\OXYCODONE HYDROCHLORIDE
  15. COLCHICINE. [Concomitant]
     Active Substance: COLCHICINE
  16. ROXANOL [Concomitant]
     Active Substance: MORPHINE SULFATE
  17. PRAVASTATIN. [Concomitant]
     Active Substance: PRAVASTATIN

REACTIONS (4)
  - Hypoxia [None]
  - Blood pressure decreased [None]
  - Bronchiectasis [None]
  - Condition aggravated [None]

NARRATIVE: CASE EVENT DATE: 20181114
